FAERS Safety Report 8268349-2 (Version None)
Quarter: 2012Q1

REPORT INFORMATION
  Report Type: 
  Country: None (occurrence: None)
  Receive Date: 20120327
  Receipt Date: 20090707
  Transmission Date: 20120608
  Serious: Yes (Other)
  Sender: FDA-Public Use
  Company Number: PHEH2009US03784

PATIENT
  Age: 22 Year
  Sex: Female
  Weight: 52.7 kg

DRUGS (3)
  1. LOESTRIN 24 FE [Concomitant]
  2. GLEEVEC [Suspect]
     Indication: CHRONIC MYELOID LEUKAEMIA
     Dosage: 800;400 MG, QD, ORAL,
     Route: 048
     Dates: start: 20070131, end: 20090422
  3. GLEEVEC [Suspect]
     Indication: CHRONIC MYELOID LEUKAEMIA
     Dosage: 800;400 MG, QD, ORAL,
     Route: 048
     Dates: start: 20070102, end: 20070124

REACTIONS (5)
  - POLYMERASE CHAIN REACTION [None]
  - CHRONIC MYELOID LEUKAEMIA [None]
  - DRUG INEFFECTIVE [None]
  - PANCYTOPENIA [None]
  - ANAEMIA [None]
